FAERS Safety Report 7013430-9 (Version None)
Quarter: 2010Q3

REPORT INFORMATION
  Report Type: 
  Country: None (occurrence: None)
  Receive Date: 20100924
  Receipt Date: 20100914
  Transmission Date: 20110219
  Serious: No
  Sender: FDA-Public Use
  Company Number: US-PFIZER INC-2010118486

PATIENT
  Sex: Female
  Weight: 68.027 kg

DRUGS (4)
  1. ZOLOFT [Suspect]
     Indication: IRRITABILITY
     Dosage: 100 MG, DAILY
  2. ZOLOFT [Suspect]
     Indication: INSOMNIA
  3. PRISTIQ [Suspect]
     Indication: MENOPAUSAL DISORDER
     Dosage: 50 MG, DAILY
     Dates: start: 20100801
  4. FEXOFENADINE [Concomitant]
     Indication: HYPERSENSITIVITY
     Dosage: UNK

REACTIONS (5)
  - DIZZINESS [None]
  - DRUG ADMINISTRATION ERROR [None]
  - MALAISE [None]
  - POOR QUALITY SLEEP [None]
  - PYREXIA [None]
